FAERS Safety Report 12780228 (Version 3)
Quarter: 2016Q4

REPORT INFORMATION
  Report Type: Spontaneous
  Country: US (occurrence: US)
  Receive Date: 20160926
  Receipt Date: 20161221
  Transmission Date: 20170207
  Serious: Yes (Other)
  Sender: FDA-Public Use
  Company Number: US-PFIZER INC-2016442522

PATIENT
  Age: 84 Year
  Sex: Female

DRUGS (7)
  1. METFORMIN [Concomitant]
     Active Substance: METFORMIN HYDROCHLORIDE
     Indication: DIABETES MELLITUS
     Dosage: 500 MG, 2X/DAY
     Route: 048
  2. NEURONTIN [Suspect]
     Active Substance: GABAPENTIN
     Indication: NEUROPATHY PERIPHERAL
  3. LISINOPRIL. [Concomitant]
     Active Substance: LISINOPRIL
     Indication: BLOOD PRESSURE ABNORMAL
     Dosage: 10 MG, 2X/DAY
     Route: 048
  4. XARELTO [Concomitant]
     Active Substance: RIVAROXABAN
     Indication: ATRIAL FIBRILLATION
     Dosage: 20 MG, 1X/DAY
     Route: 048
  5. LOVASTATIN. [Concomitant]
     Active Substance: LOVASTATIN
     Dosage: 10 MG, 1X/DAY (1 TABLET WITH HER MEAL AT NIGHT)
  6. METOPROLOL. [Concomitant]
     Active Substance: METOPROLOL
     Indication: ATRIAL FIBRILLATION
     Dosage: 25 MG, AS NEEDED (WHEN HER PULSE RATE IS UP TO 136)
  7. NEURONTIN [Suspect]
     Active Substance: GABAPENTIN
     Indication: DIABETIC NEUROPATHY
     Dosage: 200 MG, 1X/DAY (100 MG CAPSULE, TWO CAPSULES BY MOUTH AT NIGHT)
     Route: 048
     Dates: start: 2006

REACTIONS (13)
  - Irritability [Unknown]
  - Coordination abnormal [Unknown]
  - Skin ulcer [Unknown]
  - Limb injury [Unknown]
  - Malaise [Unknown]
  - Osteomyelitis [Unknown]
  - Head discomfort [Unknown]
  - Dizziness [Unknown]
  - Product use issue [Unknown]
  - Decreased activity [Unknown]
  - Somnolence [Unknown]
  - Speech disorder [Unknown]
  - Dyskinesia [Unknown]
